FAERS Safety Report 14342177 (Version 1)
Quarter: 2018Q1

REPORT INFORMATION
  Report Type: Spontaneous
  Country: US (occurrence: US)
  Receive Date: 20180102
  Receipt Date: 20180102
  Transmission Date: 20180509
  Serious: No
  Sender: FDA-Public Use
  Company Number: US-TEVA-762704ACC

PATIENT
  Sex: Female

DRUGS (1)
  1. MINOXIDIL 5 PERCENT TOPICAL SOLUTION [Suspect]
     Active Substance: MINOXIDIL
     Indication: ACNE
     Dates: start: 2017, end: 201704

REACTIONS (2)
  - Product use in unapproved indication [Unknown]
  - Hypertrichosis [Recovered/Resolved]
